FAERS Safety Report 10274532 (Version 2)
Quarter: 2014Q4

REPORT INFORMATION
  Report Type: Spontaneous
  Country: ES (occurrence: ES)
  Receive Date: 20140702
  Receipt Date: 20141105
  Transmission Date: 20150528
  Serious: Yes (Death, Hospitalization)
  Sender: FDA-Public Use
  Company Number: ES-B.I. PHARMACEUTICALS,INC./RIDGEFIELD-2014-BI-29627ES

PATIENT
  Age: 61 Year
  Sex: Female

DRUGS (1)
  1. JENTADUETO [Suspect]
     Active Substance: LINAGLIPTIN\METFORMIN HYDROCHLORIDE
     Indication: TYPE 2 DIABETES MELLITUS
     Dosage: DOSE PER APPLICATION: 2.5MG/1000MG (1 FIXED DOSE); DAILY DOSE: 2 FIXED DOSE
     Route: 048
     Dates: start: 20140604, end: 20140610

REACTIONS (5)
  - Vomiting [Unknown]
  - Lactic acidosis [Fatal]
  - Diarrhoea [Unknown]
  - Abdominal pain [Unknown]
  - Acute kidney injury [Unknown]

NARRATIVE: CASE EVENT DATE: 20140608
